FAERS Safety Report 4472622-3 (Version None)
Quarter: 2004Q4

REPORT INFORMATION
  Report Type: 
  Country: None (occurrence: None)
  Receive Date: 20041008
  Receipt Date: 20040929
  Transmission Date: 20050328
  Serious: Yes (Hospitalization, Disabling)
  Sender: FDA-Public Use
  Company Number: 2003CG00829

PATIENT
  Age: 12 Year
  Sex: Male

DRUGS (7)
  1. MOPRAL [Suspect]
     Indication: PROPHYLAXIS AGAINST GASTROINTESTINAL ULCER
     Dosage: 20 MG QD PO
     Route: 048
     Dates: start: 20021201, end: 20030529
  2. METHOTREXATE [Suspect]
     Indication: LEUKAEMIA RECURRENT PROPHYLAXIS
     Dosage: 20 MG WEEK PO
     Route: 048
     Dates: start: 20010101, end: 20030301
  3. METHOTREXATE [Suspect]
     Indication: LEUKAEMIA RECURRENT PROPHYLAXIS
     Dosage: 20 MG WEEK PO
     Route: 048
     Dates: start: 20030301, end: 20030818
  4. PURINETHOL [Suspect]
     Indication: LEUKAEMIA RECURRENT PROPHYLAXIS
     Dosage: 50 MG BID PO
     Route: 048
     Dates: start: 20010101, end: 20030801
  5. PURINETHOL [Suspect]
     Indication: LEUKAEMIA RECURRENT PROPHYLAXIS
     Dosage: 50 MG BID PO
     Route: 048
     Dates: start: 20030301, end: 20030801
  6. BACTRIM [Suspect]
     Indication: INFECTION PROPHYLAXIS
     Dosage: 800 + 160 MG TIWK
     Dates: start: 20010101, end: 20030301
  7. BACTRIM [Suspect]
     Indication: INFECTION PROPHYLAXIS
     Dosage: 800 + 160 MG TIWK
     Dates: start: 20030301, end: 20030818

REACTIONS (7)
  - ARTHRALGIA [None]
  - DRUG INTERACTION [None]
  - GAIT DISTURBANCE [None]
  - MUSCLE CRAMP [None]
  - MUSCULOSKELETAL STIFFNESS [None]
  - MYALGIA [None]
  - MYOPATHY [None]
